FAERS Safety Report 7355561-X (Version None)
Quarter: 2011Q1

REPORT INFORMATION
  Report Type: 
  Country: None (occurrence: None)
  Receive Date: 20110316
  Receipt Date: 20110309
  Transmission Date: 20110831
  Serious: Yes (Hospitalization)
  Sender: FDA-Public Use
  Company Number: A0918346A

PATIENT
  Age: 57 Year
  Sex: Female
  Weight: 79.5 kg

DRUGS (5)
  1. CARBIDOPA [Concomitant]
  2. REQUIP [Suspect]
  3. HUMIRA [Suspect]
     Indication: CROHN'S DISEASE
     Dosage: 40MG UNKNOWN
     Dates: start: 20090101
  4. OXYBUTYNIN [Concomitant]
  5. STALEVO 100 [Concomitant]

REACTIONS (4)
  - CYSTITIS [None]
  - CEREBROVASCULAR ACCIDENT [None]
  - OROPHARYNGITIS FUNGAL [None]
  - INFLUENZA [None]
